FAERS Safety Report 5970948-5 (Version None)
Quarter: 2008Q4

REPORT INFORMATION
  Report Type: 
  Country: None (occurrence: None)
  Receive Date: 20081128
  Receipt Date: 20081119
  Transmission Date: 20090506
  Serious: Yes (Other)
  Sender: FDA-Public Use
  Company Number: PHHY2008JP29153

PATIENT
  Age: 46 Year
  Sex: Female

DRUGS (1)
  1. GLEEVEC [Suspect]

REACTIONS (3)
  - DISSEMINATED INTRAVASCULAR COAGULATION [None]
  - INFECTION [None]
  - PULMONARY ALVEOLAR HAEMORRHAGE [None]
